FAERS Safety Report 13937624 (Version 1)
Quarter: 2017Q3

REPORT INFORMATION
  Report Type: Spontaneous
  Country: GB (occurrence: GB)
  Receive Date: 20170905
  Receipt Date: 20170905
  Transmission Date: 20171127
  Serious: Yes (Hospitalization)
  Sender: FDA-Public Use
  Company Number: GB-PFIZER INC-2017379232

PATIENT
  Age: 31 Year
  Sex: Female
  Weight: 78 kg

DRUGS (2)
  1. MIFEPRISTONE LINEPHARMA [Suspect]
     Active Substance: MIFEPRISTONE
     Indication: PRODUCT USED FOR UNKNOWN INDICATION
     Dosage: 200 MG, SINGLE
  2. MISOPROSTOL. [Suspect]
     Active Substance: MISOPROSTOL
     Indication: PRODUCT USED FOR UNKNOWN INDICATION
     Dosage: 800 UG, SINGLE

REACTIONS (3)
  - Vaginal haemorrhage [Unknown]
  - Drug ineffective for unapproved indication [Unknown]
  - Sepsis [Unknown]

NARRATIVE: CASE EVENT DATE: 20170629
